FAERS Safety Report 5076747-3 (Version None)
Quarter: 2006Q3

REPORT INFORMATION
  Report Type: 
  Country: None (occurrence: None)
  Receive Date: 20060810
  Receipt Date: 20060731
  Transmission Date: 20061208
  Serious: Yes (Hospitalization)
  Sender: FDA-Public Use
  Company Number: PHHO2006CL12420

PATIENT
  Age: 69 Year
  Sex: Female

DRUGS (1)
  1. ZELMAC / HTF 919A [Suspect]
     Indication: IRRITABLE BOWEL SYNDROME
     Dosage: 6 MG, QD
     Route: 048
     Dates: start: 20060201, end: 20060401

REACTIONS (4)
  - CATHETER PLACEMENT [None]
  - COLON CANCER [None]
  - PAIN [None]
  - TUMOUR EXCISION [None]
